FAERS Safety Report 9070413 (Version 1)
Quarter: 2013Q1

REPORT INFORMATION
  Report Type: Spontaneous
  Country: ES (occurrence: ES)
  Receive Date: 20130215
  Receipt Date: 20130215
  Transmission Date: 20140127
  Serious: Yes (Hospitalization)
  Sender: FDA-Public Use
  Company Number: ES-BAYER-2013-017435

PATIENT
  Age: 67 Year
  Sex: Male

DRUGS (4)
  1. NEXAVAR [Suspect]
     Indication: HEPATIC CANCER
     Dosage: 400 MG, UNK
     Route: 065
     Dates: start: 20110418, end: 20120518
  2. TROMALYT [Concomitant]
     Dosage: 300 MG, QD
  3. METAMIZOL [Concomitant]
     Dosage: UNK
  4. ENALAPRIL [Concomitant]
     Dosage: 2.5 MG, QD

REACTIONS (1)
  - Pustular psoriasis [Recovered/Resolved]
